FAERS Safety Report 23735507 (Version 1)
Quarter: 2024Q2

REPORT INFORMATION
  Report Type: Spontaneous
  Country: FR (occurrence: FR)
  Receive Date: 20240412
  Receipt Date: 20240412
  Transmission Date: 20240716
  Serious: Yes (Other)
  Sender: FDA-Public Use
  Company Number: FR-GLAXOSMITHKLINE-FR2024GSK024786

PATIENT
  Sex: Female

DRUGS (6)
  1. PACLITAXEL [Suspect]
     Active Substance: PACLITAXEL
     Indication: Neoplasm
     Dosage: 122 MILLIGRAM/SQ. METER
     Route: 042
     Dates: start: 20231227, end: 20231227
  2. PACLITAXEL [Suspect]
     Active Substance: PACLITAXEL
     Indication: Endometrial cancer
     Dosage: 122 MILLIGRAM/SQ. METER
     Route: 042
     Dates: start: 20240221
  3. CARBOPLATIN [Suspect]
     Active Substance: CARBOPLATIN
     Indication: Neoplasm
     Dosage: UNK
     Route: 042
     Dates: start: 20231227, end: 20231227
  4. CARBOPLATIN [Suspect]
     Active Substance: CARBOPLATIN
     Indication: Endometrial cancer
     Dosage: UNK (6 MG/ML/MIN)
     Route: 042
     Dates: start: 20240221
  5. DOSTARLIMAB [Suspect]
     Active Substance: DOSTARLIMAB
     Indication: Endometrial cancer
     Dosage: 500 MILLIGRAM, Q3W
     Route: 042
     Dates: start: 20231206, end: 20231227
  6. DOSTARLIMAB [Suspect]
     Active Substance: DOSTARLIMAB
     Indication: Neoplasm
     Dosage: 500 MILLIGRAM, Q3W
     Route: 042
     Dates: start: 20240221

REACTIONS (3)
  - Renal failure [Unknown]
  - Neutropenia [Unknown]
  - Thrombocytopenia [Unknown]
